FAERS Safety Report 23467759 (Version 1)
Quarter: 2024Q1

REPORT INFORMATION
  Report Type: Spontaneous
  Country: CN (occurrence: CN)
  Receive Date: 20240201
  Receipt Date: 20240201
  Transmission Date: 20240409
  Serious: Yes (Other)
  Sender: FDA-Public Use
  Company Number: None

PATIENT
  Age: 52 Year
  Sex: Female
  Weight: 87 kg

DRUGS (2)
  1. OZEMPIC [Suspect]
     Active Substance: SEMAGLUTIDE
     Indication: Type 2 diabetes mellitus
     Dosage: 0.25 MG, QW
     Route: 058
     Dates: start: 20240105, end: 20240105
  2. ERTUGLIFLOZIN [Concomitant]
     Active Substance: ERTUGLIFLOZIN
     Indication: Type 2 diabetes mellitus
     Dosage: 1.000TABLET,QD
     Route: 048
     Dates: start: 20240107, end: 20240110

REACTIONS (2)
  - Nausea [Recovering/Resolving]
  - Diabetic ketoacidosis [Unknown]

NARRATIVE: CASE EVENT DATE: 20240107
